FAERS Safety Report 15204385 (Version 1)
Quarter: 2018Q3

REPORT INFORMATION
  Report Type: Spontaneous
  Country: US (occurrence: US)
  Receive Date: 20180628
  Receipt Date: 20180628
  Transmission Date: 20181010
  Serious: Yes (Other)
  Sender: FDA-Public Use
  Company Number: None

PATIENT
  Age: 78 Year
  Sex: Female
  Weight: 83.25 kg

DRUGS (10)
  1. METOLAZONE. [Concomitant]
     Active Substance: METOLAZONE
  2. BIOTIN [Concomitant]
     Active Substance: BIOTIN
  3. IBRANCE [Suspect]
     Active Substance: PALBOCICLIB
     Indication: BREAST CANCER
     Route: 048
     Dates: start: 20161130, end: 20180628
  4. HYDRALAZINE [Concomitant]
     Active Substance: HYDRALAZINE HYDROCHLORIDE
  5. METFORMIN [Concomitant]
     Active Substance: METFORMIN HYDROCHLORIDE
  6. FASLODEX [Concomitant]
     Active Substance: FULVESTRANT
  7. BIOFLEX [Concomitant]
     Active Substance: GLUCOSAMINE SULFATE
  8. PRAVASTATIN. [Concomitant]
     Active Substance: PRAVASTATIN
  9. VITAMIN C [Concomitant]
     Active Substance: ASCORBIC ACID
  10. METOPROLOL. [Concomitant]
     Active Substance: METOPROLOL

REACTIONS (1)
  - Disease progression [None]
